FAERS Safety Report 8418000-3 (Version None)
Quarter: 2012Q2

REPORT INFORMATION
  Report Type: 
  Country: None (occurrence: None)
  Receive Date: 20120531
  Receipt Date: 20120525
  Transmission Date: 20120825
  Serious: Yes (Death)
  Sender: FDA-Public Use
  Company Number: 134744

PATIENT
  Age: 71 Year
  Sex: Male
  Weight: 67 kg

DRUGS (1)
  1. LEUCOVORIN CALCIUM [Suspect]
     Indication: COLORECTAL CANCER METASTATIC
     Dosage: 400MG/M2 ON DAY ONE EVERY 14 DAYS
     Dates: start: 20120417

REACTIONS (4)
  - CARDIAC ARREST [None]
  - COLORECTAL CANCER METASTATIC [None]
  - NEOPLASM PROGRESSION [None]
  - SUDDEN CARDIAC DEATH [None]
